FAERS Safety Report 10042712 (Version 2)
Quarter: 2014Q2

REPORT INFORMATION
  Report Type: Report from Study
  Country: US (occurrence: US)
  Receive Date: 20140327
  Receipt Date: 20140402
  Transmission Date: 20141212
  Serious: Yes (Death)
  Sender: FDA-Public Use
  Company Number: GXBR2014US000948

PATIENT
  Age: 21 Year
  Sex: Female

DRUGS (2)
  1. ENOXAPARIN SODIUM [Suspect]
     Indication: PULMONARY EMBOLISM
     Dosage: 80 MG, QD
     Route: 058
     Dates: start: 201307
  2. HYDROMORPHONE [Concomitant]
     Indication: CANCER PAIN
     Dosage: UNK DF, UNK

REACTIONS (2)
  - Hepatic cancer [Fatal]
  - Malignant neoplasm progression [Fatal]
